FAERS Safety Report 5567837-7 (Version None)
Quarter: 2007Q4

REPORT INFORMATION
  Report Type: 
  Country: None (occurrence: None)
  Receive Date: 20071220
  Receipt Date: 20071218
  Transmission Date: 20080405
  Serious: Yes (Other)
  Sender: FDA-Public Use
  Company Number: PHNU2007DE02231

PATIENT
  Age: 45 Year
  Sex: Male

DRUGS (5)
  1. LEPONEX [Suspect]
     Indication: SCHIZOPHRENIA, RESIDUAL TYPE
     Dosage: UP TO 300 MG/DAY
     Route: 048
     Dates: start: 19940101
  2. LEPONEX [Suspect]
     Dosage: 200 MG/DAY
     Route: 048
  3. SIMVASTATIN [Concomitant]
     Dosage: 10 MG/DAY
     Route: 048
  4. HUMALOG [Concomitant]
  5. LANTUS [Concomitant]

REACTIONS (3)
  - BLOOD CREATININE INCREASED [None]
  - NEPHRITIS INTERSTITIAL [None]
  - RENAL TUBULAR DISORDER [None]
